FAERS Safety Report 18574008 (Version 1)
Quarter: 2020Q4

REPORT INFORMATION
  Report Type: Spontaneous
  Country: US (occurrence: US)
  Receive Date: 20201202
  Receipt Date: 20201202
  Transmission Date: 20210114
  Serious: Yes (Life-Threatening, Hospitalization)
  Sender: FDA-Public Use
  Company Number: None

PATIENT
  Age: 76 Year
  Sex: Male

DRUGS (1)
  1. DURVALUMAB (DURVALUMAB 50MG/ML INJ, SOLN, 10ML) [Suspect]
     Active Substance: DURVALUMAB
     Dosage: ?          OTHER FREQUENCY:UNKNOWN;OTHER ROUTE:IV?

REACTIONS (4)
  - Dyspnoea [None]
  - Haemoptysis [None]
  - Pneumonitis [None]
  - Hypoxia [None]

NARRATIVE: CASE EVENT DATE: 20201128
